FAERS Safety Report 26175144 (Version 1)
Quarter: 2025Q4

REPORT INFORMATION
  Report Type: Spontaneous
  Country: EU (occurrence: EU)
  Receive Date: 20251218
  Receipt Date: 20251218
  Transmission Date: 20260118
  Serious: Yes (Other)
  Sender: FRESENIUS KABI
  Company Number: None

PATIENT
  Age: 55 Year
  Sex: Male
  Weight: 63 kg

DRUGS (1)
  1. ADALIMUMAB [Suspect]
     Active Substance: ADALIMUMAB
     Indication: Crohn^s disease
     Dosage: SOLUTION FOR INJECTION IN THE PRE-FILLED SYRINGE?40MG EVERY OTHER WEEK
     Route: 058

REACTIONS (1)
  - Hyperpyrexia [Unknown]
